FAERS Safety Report 19608248 (Version 2)
Quarter: 2021Q4

REPORT INFORMATION
  Report Type: Report from Study
  Country: US (occurrence: US)
  Receive Date: 20210726
  Receipt Date: 20211014
  Transmission Date: 20220303
  Serious: Yes (Other)
  Sender: FDA-Public Use
  Company Number: NVSC2021US160353

PATIENT
  Sex: Female

DRUGS (1)
  1. XIIDRA [Suspect]
     Active Substance: LIFITEGRAST
     Indication: Stent placement
     Dosage: 1 DRP, BID (1 GT BID)
     Route: 065
     Dates: start: 20180711

REACTIONS (2)
  - Blindness [Unknown]
  - Visual impairment [Unknown]
